FAERS Safety Report 13854857 (Version 2)
Quarter: 2017Q3

REPORT INFORMATION
  Report Type: Spontaneous
  Country: QA (occurrence: QA)
  Receive Date: 20170810
  Receipt Date: 20170915
  Transmission Date: 20171127
  Serious: Yes (Hospitalization, Other)
  Sender: FDA-Public Use
  Company Number: QA-SUN PHARMACEUTICAL INDUSTRIES LTD-2017RR-147129

PATIENT
  Age: 55 Year
  Sex: Male

DRUGS (7)
  1. METHYLPREDNISOLONE. [Suspect]
     Active Substance: METHYLPREDNISOLONE
     Indication: PNEUMOCYSTIS JIROVECII INFECTION
     Dosage: 60 ML, TID
     Route: 042
     Dates: start: 2007
  2. PREDNISOLONE. [Suspect]
     Active Substance: PREDNISOLONE
     Indication: PRODUCT USED FOR UNKNOWN INDICATION
     Dosage: 60 MG
     Route: 048
     Dates: start: 2007
  3. METHYLPREDNISOLONE. [Suspect]
     Active Substance: METHYLPREDNISOLONE
     Indication: PORTAL VEIN THROMBOSIS
     Dosage: 60 ML, TID
     Route: 042
     Dates: start: 2007
  4. METHYLPREDNISOLONE. [Suspect]
     Active Substance: METHYLPREDNISOLONE
     Indication: ORGANISING PNEUMONIA
     Dosage: 60 ML, TID
     Route: 042
     Dates: start: 2007
  5. MYCOPHENOLATE MOFETIL. [Suspect]
     Active Substance: MYCOPHENOLATE MOFETIL
     Indication: IMMUNOSUPPRESSANT DRUG THERAPY
     Route: 065
     Dates: end: 200710
  6. PREDNISONE. [Suspect]
     Active Substance: PREDNISONE
     Indication: IMMUNOSUPPRESSION
     Dosage: 35 MG, DAILY
     Route: 065
     Dates: start: 2007
  7. TACROLIMUS. [Suspect]
     Active Substance: TACROLIMUS
     Indication: IMMUNOSUPPRESSANT DRUG THERAPY
     Route: 065

REACTIONS (1)
  - Mucormycosis [Recovering/Resolving]

NARRATIVE: CASE EVENT DATE: 2007
